FAERS Safety Report 21554502 (Version 1)
Quarter: 2022Q4

REPORT INFORMATION
  Report Type: Spontaneous
  Country: US (occurrence: None)
  Receive Date: 20221104
  Receipt Date: 20221104
  Transmission Date: 20230113
  Serious: Yes (Death, Other)
  Sender: FDA-Public Use
  Company Number: 2022A363405

PATIENT
  Age: 953 Month
  Sex: Male
  Weight: 81.6 kg

DRUGS (1)
  1. CALQUENCE [Suspect]
     Active Substance: ACALABRUTINIB
     Indication: Neoplasm malignant
     Dosage: 100.0MG UNKNOWN
     Route: 048
     Dates: start: 2022

REACTIONS (4)
  - Acute kidney injury [Unknown]
  - Death [Fatal]
  - Stomach mass [Unknown]
  - Weight decreased [Unknown]

NARRATIVE: CASE EVENT DATE: 20220801
